FAERS Safety Report 7457259-6 (Version None)
Quarter: 2011Q2

REPORT INFORMATION
  Report Type: 
  Country: None (occurrence: None)
  Receive Date: 20110426
  Receipt Date: 20110411
  Transmission Date: 20111010
  Serious: Yes (Other)
  Sender: FDA-Public Use
  Company Number: 2011MA003693

PATIENT
  Age: 72 Year
  Sex: Female

DRUGS (2)
  1. METHYLPREDNISOLONE [Concomitant]
  2. LIDOCAINE HCL [Suspect]
     Indication: OCCIPITAL NEURALGIA
     Dosage: INJ

REACTIONS (3)
  - VISION BLURRED [None]
  - DIZZINESS [None]
  - DYSARTHRIA [None]
